FAERS Safety Report 7900233-3 (Version None)
Quarter: 2011Q4

REPORT INFORMATION
  Report Type: 
  Country: None (occurrence: None)
  Receive Date: 20111108
  Receipt Date: 20111027
  Transmission Date: 20120403
  Serious: Yes (Death, Hospitalization)
  Sender: FDA-Public Use
  Company Number: DE-CELGENEUS-062-AB007-11070015

PATIENT
  Age: 81 Year
  Sex: Female
  Weight: 69.5 kg

DRUGS (8)
  1. SIMVASTATIN [Concomitant]
     Dosage: 20 MILLIGRAM
     Route: 048
     Dates: start: 20060101, end: 20110727
  2. PRAMIPEXOLE DIHYDROCHLORIDE [Concomitant]
     Dosage: .9 MILLIGRAM
     Route: 048
     Dates: start: 20060101, end: 20110727
  3. BROMAZEPAM [Concomitant]
     Indication: AGITATION
  4. ABRAXANE [Suspect]
     Route: 041
     Dates: end: 20110727
  5. BROMAZEPAM [Concomitant]
     Dosage: 8 MILLIGRAM
     Route: 048
     Dates: end: 20110727
  6. ABRAXANE [Suspect]
     Route: 041
     Dates: start: 20110614, end: 20110627
  7. LEVOTHYROXINE SODIUM [Concomitant]
     Indication: HYPERTHYROIDISM
     Dosage: 125 MILLIGRAM
     Route: 048
     Dates: start: 20060101, end: 20110727
  8. ABRAXANE [Suspect]
     Indication: METASTATIC MALIGNANT MELANOMA
     Route: 041
     Dates: start: 20110503

REACTIONS (1)
  - METASTASES TO CENTRAL NERVOUS SYSTEM [None]
